FAERS Safety Report 15936713 (Version 1)
Quarter: 2019Q1

REPORT INFORMATION
  Report Type: Spontaneous
  Country: FR (occurrence: FR)
  Receive Date: 20190208
  Receipt Date: 20190208
  Transmission Date: 20190417
  Serious: Yes (Other)
  Sender: FDA-Public Use
  Company Number: FR-ACCORD-105755

PATIENT
  Age: 57 Year
  Sex: Female

DRUGS (3)
  1. DACARBAZINE. [Suspect]
     Active Substance: DACARBAZINE
     Indication: METASTASES TO LUNG
     Dosage: UNK
     Route: 065
  2. GEMCITABINE/GEMCITABINE HYDROCHLORIDE [Suspect]
     Active Substance: GEMCITABINE\GEMCITABINE HYDROCHLORIDE
     Indication: UTERINE LEIOMYOSARCOMA
     Dosage: 28800 MG, UNK
     Route: 065
  3. GEMZAR [Suspect]
     Active Substance: GEMCITABINE HYDROCHLORIDE
     Indication: METASTASES TO LIVER
     Dosage: UNK (REDUCED IN DOSE)

REACTIONS (7)
  - Off label use [Unknown]
  - Acute kidney injury [Recovering/Resolving]
  - Haematuria [Recovering/Resolving]
  - Thrombotic microangiopathy [Recovering/Resolving]
  - Anaemia [Recovered/Resolved]
  - Proteinuria [Recovering/Resolving]
  - Blood creatinine increased [Recovering/Resolving]
